FAERS Safety Report 15770986 (Version 1)
Quarter: 2018Q4

REPORT INFORMATION
  Report Type: Spontaneous
  Country: US (occurrence: US)
  Receive Date: 20181228
  Receipt Date: 20181228
  Transmission Date: 20190205
  Serious: Yes (Disabling)
  Sender: FDA-Public Use
  Company Number: None

PATIENT
  Age: 59 Year
  Sex: Female
  Weight: 53.1 kg

DRUGS (1)
  1. FOSAMAX [Suspect]
     Active Substance: ALENDRONATE SODIUM
     Indication: OSTEOPOROSIS
     Dosage: ?          QUANTITY:1 TABLET(S);OTHER FREQUENCY:ONCE WEEKLY;?
     Route: 048
     Dates: start: 20181212, end: 20181212

REACTIONS (5)
  - Bone pain [None]
  - Gait disturbance [None]
  - Pain in extremity [None]
  - Asthenia [None]
  - Arthralgia [None]

NARRATIVE: CASE EVENT DATE: 20181212
